FAERS Safety Report 14128720 (Version 1)
Quarter: 2017Q4

REPORT INFORMATION
  Report Type: Spontaneous
  Country: US (occurrence: None)
  Receive Date: 20171026
  Receipt Date: 20171026
  Transmission Date: 20180321
  Serious: No
  Sender: FDA-Public Use
  Company Number: None

PATIENT

DRUGS (2)
  1. BACITRACIN. [Suspect]
     Active Substance: BACITRACIN
     Route: 061
  2. POLYCIN [Suspect]
     Active Substance: BACITRACIN\BACITRACIN ZINC\POLYMYXIN B SULFATE
     Route: 061

REACTIONS (1)
  - Product packaging confusion [None]
